FAERS Safety Report 18437119 (Version 8)
Quarter: 2021Q1

REPORT INFORMATION
  Report Type: Spontaneous
  Country: US (occurrence: US)
  Receive Date: 20201028
  Receipt Date: 20210126
  Transmission Date: 20210419
  Serious: Yes (Other)
  Sender: FDA-Public Use
  Company Number: US-PFIZER INC-2020394795

PATIENT
  Age: 66 Year
  Sex: Female
  Weight: 58.51 kg

DRUGS (10)
  1. PRISTIQ EXTENDED?RELEASE [Suspect]
     Active Substance: DESVENLAFAXINE SUCCINATE
     Dosage: 25 MG, ALTERNATE DAY
     Dates: start: 20201018, end: 20201021
  2. TYLENOL [Concomitant]
     Active Substance: ACETAMINOPHEN
     Indication: PAIN
     Dosage: 1300 MG, (650MG, TAKES 2 EVERY 6.5 HOURS)
  3. OXYCODONE [Concomitant]
     Active Substance: OXYCODONE
     Indication: PAIN
     Dosage: 0.5 MG, EVERY 6 HOURS AS NEEDED, (.5MG EVERY 6 HOURS AS NEEDED)
  4. DOXYCYCLINE. [Concomitant]
     Active Substance: DOXYCYCLINE
     Indication: PNEUMONIA
     Dosage: 100 MG, 2X/DAY
     Dates: start: 20201009, end: 20201018
  5. PRISTIQ EXTENDED?RELEASE [Suspect]
     Active Substance: DESVENLAFAXINE SUCCINATE
     Indication: MAJOR DEPRESSION
     Dosage: 25 MG, 1X/DAY
  6. PRISTIQ EXTENDED?RELEASE [Suspect]
     Active Substance: DESVENLAFAXINE SUCCINATE
     Indication: DEPRESSION
     Dosage: 50 MG, DAILY
     Dates: start: 20200903
  7. ASPIRIN [ACETYLSALICYLIC ACID] [Concomitant]
     Active Substance: ASPIRIN
     Indication: PAIN MANAGEMENT
     Dosage: 975 MG, 4X/DAY, (325MG, TAKES 3 AT A TIME 4 TIMES DAILY IN BETWEEN DOSES OF TYLENOL)
  8. ZITHROMAX [Concomitant]
     Active Substance: AZITHROMYCIN DIHYDRATE
     Indication: PNEUMONIA
     Dosage: UNK
     Dates: start: 20201001, end: 20201005
  9. PREDNISONE COX [Concomitant]
     Indication: LUNG DISORDER
     Dosage: 10 MG, 4X/DAY, (10MG, 4 TIMES A DAY FOR 5 DAYS, THEN 4 TIMES DAY FOR 4 DAYS)
     Dates: start: 20201001
  10. PREDNISONE COX [Concomitant]
     Dosage: 10 MG, DAILY, (ONE DAILY FOR 5 DAYS)

REACTIONS (4)
  - Intentional product use issue [Unknown]
  - Product prescribing issue [Unknown]
  - Pneumonia [Recovering/Resolving]
  - Feeling abnormal [Unknown]

NARRATIVE: CASE EVENT DATE: 20201013
